FAERS Safety Report 4618779-2 (Version None)
Quarter: 2005Q1

REPORT INFORMATION
  Report Type: 
  Country: None (occurrence: None)
  Receive Date: 20050323
  Receipt Date: 20050315
  Transmission Date: 20050727
  Serious: Yes (Hospitalization, Other)
  Sender: FDA-Public Use
  Company Number: 2005045130

PATIENT
  Age: 64 Year
  Sex: Female
  Weight: 65.318 kg

DRUGS (10)
  1. NORVASC [Suspect]
     Indication: HYPERTENSION
     Dosage: 2.5 MG (2.5 MG, 1 IN 1 D), ORAL
     Route: 048
     Dates: start: 20050210, end: 20050221
  2. ALPRAZOLAM [Suspect]
     Indication: ILL-DEFINED DISORDER
     Dosage: 25 MG
  3. ESOMEPRAZOLE (ESOMEPRAZOLE) [Concomitant]
  4. TILACTASE (TILACTASE) [Concomitant]
  5. MAGNESIUM HYDROXIDE (MAGNESIUM HYDROXIDE) [Concomitant]
  6. CALCIUM WITH VITAMIN D (CALCIUM PHOSPHATE, CALCIUM SODIUM LACTATE, ERG [Concomitant]
  7. MULTIVITAMINS AND IRON (MULTIVITAMINS AND IRON) [Concomitant]
  8. FEXOFENADINE HYDROCHLORIDE [Concomitant]
  9. FLUTICASONE PROPIONATE [Concomitant]
  10. HYDROCHLOROTHIAZIDE/OLMESARTAN (HYDROCHLOROTHIAZIDE, OLMESARTAN) [Concomitant]

REACTIONS (19)
  - ABDOMINAL PAIN UPPER [None]
  - ASTHENIA [None]
  - BLOOD PRESSURE INCREASED [None]
  - CHEST PAIN [None]
  - CONDITION AGGRAVATED [None]
  - DYSSTASIA [None]
  - FATIGUE [None]
  - FEELING ABNORMAL [None]
  - HYPOVENTILATION [None]
  - LABORATORY TEST ABNORMAL [None]
  - LABYRINTHITIS [None]
  - PANCREATITIS RELAPSING [None]
  - PERICARDIAL EFFUSION [None]
  - PSORIASIS [None]
  - PULMONARY OEDEMA [None]
  - PYREXIA [None]
  - REFUSAL OF TREATMENT BY PATIENT [None]
  - SENSATION OF HEAVINESS [None]
  - VOMITING [None]
